FAERS Safety Report 5689815-X (Version None)
Quarter: 2008Q1

REPORT INFORMATION
  Report Type: 
  Country: None (occurrence: None)
  Receive Date: 20080328
  Receipt Date: 20080305
  Transmission Date: 20080703
  Serious: Yes (Other)
  Sender: FDA-Public Use
  Company Number: 2008S1003795

PATIENT
  Age: 26 Year
  Sex: Male

DRUGS (3)
  1. BLEOMYCIN SULFATE [Suspect]
     Indication: TESTIS CANCER
     Dosage: 30 MG
  2. ETOPOSIDE [Suspect]
     Indication: TESTIS CANCER
     Dosage: 100 MG/M**2
  3. CISPLATIN [Suspect]
     Indication: TESTIS CANCER
     Dosage: 20 MG/N** 2

REACTIONS (6)
  - AKINESIA [None]
  - AORTIC OCCLUSION [None]
  - AORTIC THROMBOSIS [None]
  - EJECTION FRACTION DECREASED [None]
  - HYPERKINESIA [None]
  - NECROSIS [None]
